FAERS Safety Report 4917045-5 (Version None)
Quarter: 2006Q1

REPORT INFORMATION
  Report Type: 
  Country: None (occurrence: None)
  Receive Date: 20060216
  Receipt Date: 20060216
  Transmission Date: 20060701
  Serious: Yes (Hospitalization)
  Sender: FDA-Public Use
  Company Number: None

PATIENT
  Age: 58 Year
  Sex: Male
  Weight: 90 kg

DRUGS (2)
  1. OXALIPLATIN 100 MG/M2 IVPB OVER 2 HOURS [Suspect]
     Indication: PANCREATIC CARCINOMA
     Dosage: DAY 2 + DAY 14 OF CYCLE  (DAY 2 )
     Route: 042
     Dates: start: 20051028
  2. GEMCITABINE [Suspect]
     Dosage: DAY 1 + DAY 14 OF CYCLE (DAY 1)

REACTIONS (2)
  - PANCYTOPENIA [None]
  - PYREXIA [None]
